FAERS Safety Report 9741317 (Version 1)
Quarter: 2013Q4

REPORT INFORMATION
  Report Type: Spontaneous
  Country: TN (occurrence: TN)
  Receive Date: 20131209
  Receipt Date: 20131209
  Transmission Date: 20140711
  Serious: Yes (Death, Other)
  Sender: FDA-Public Use
  Company Number: TN-BAXTER-2013BAX048478

PATIENT
  Age: 23 Year
  Sex: Female

DRUGS (3)
  1. ENDOXAN 1G [Suspect]
     Indication: SYSTEMIC LUPUS ERYTHEMATOSUS
     Route: 042
  2. SODIUM VALPROATE [Suspect]
     Indication: SYSTEMIC LUPUS ERYTHEMATOSUS
  3. PHENOBARBITAL [Suspect]
     Indication: SYSTEMIC LUPUS ERYTHEMATOSUS

REACTIONS (3)
  - Salmonellosis [Not Recovered/Not Resolved]
  - Inappropriate antidiuretic hormone secretion [Not Recovered/Not Resolved]
  - Death [Fatal]
